FAERS Safety Report 18536945 (Version 1)
Quarter: 2020Q4

REPORT INFORMATION
  Report Type: Spontaneous
  Country: AU (occurrence: AU)
  Receive Date: 20201124
  Receipt Date: 20201124
  Transmission Date: 20210114
  Serious: Yes (Other)
  Sender: FDA-Public Use
  Company Number: AU-JNJFOC-20201133753

PATIENT
  Age: 14 Year
  Sex: Male

DRUGS (5)
  1. HEPARIN SALINE [Concomitant]
     Route: 065
  2. HYDROCORTISONE. [Concomitant]
     Active Substance: HYDROCORTISONE
     Route: 065
  3. PARACETAMOL [Concomitant]
     Active Substance: ACETAMINOPHEN
     Route: 065
  4. INFLIXIMAB, RECOMBINANT [Suspect]
     Active Substance: INFLIXIMAB
     Indication: PRODUCT USED FOR UNKNOWN INDICATION
     Route: 042
  5. LORATADINE. [Concomitant]
     Active Substance: LORATADINE
     Route: 065

REACTIONS (9)
  - Chest discomfort [Unknown]
  - Throat tightness [Recovered/Resolved]
  - Heart rate increased [Unknown]
  - Abdominal pain [Unknown]
  - Nausea [Recovered/Resolved]
  - Blood pressure increased [Unknown]
  - Flushing [Unknown]
  - Infusion related reaction [Unknown]
  - Anxiety [Recovered/Resolved]

NARRATIVE: CASE EVENT DATE: 20200222
